FAERS Safety Report 7724720-6 (Version None)
Quarter: 2011Q3

REPORT INFORMATION
  Report Type: 
  Country: None (occurrence: None)
  Receive Date: 20110901
  Receipt Date: 20110708
  Transmission Date: 20111222
  Serious: Yes (Other)
  Sender: FDA-Public Use
  Company Number: GB-BAYER-2011-013428

PATIENT
  Age: 37 Year
  Sex: Female

DRUGS (5)
  1. MS CONTIN [Suspect]
     Indication: SYMPHYSIOLYSIS
     Dosage: 5 MG, BID
     Route: 048
     Dates: start: 20100922
  2. CITALOPRAM [Concomitant]
  3. CODEINE PHOSPHATE AND ACETAMINOPHEN [Suspect]
     Indication: SYMPHYSIOLYSIS
     Route: 048
  4. BUPRENORPHINE HCL [Suspect]
     Indication: SYMPHYSIOLYSIS
     Dosage: 10 ?G PER HOUR
     Route: 062
     Dates: start: 20101215, end: 20101229
  5. ACETAMINOPHEN [Suspect]
     Indication: SYMPHYSIOLYSIS
     Dosage: 1 G, UNK

REACTIONS (4)
  - MATERNAL EXPOSURE DURING PREGNANCY [None]
  - STILLBIRTH [None]
  - DRUG INEFFECTIVE [None]
  - INTRA-UTERINE DEATH [None]
